FAERS Safety Report 6379700-2 (Version None)
Quarter: 2009Q3

REPORT INFORMATION
  Report Type: 
  Country: None (occurrence: None)
  Receive Date: 20090928
  Receipt Date: 20090917
  Transmission Date: 20100115
  Serious: Yes (Hospitalization, Other)
  Sender: FDA-Public Use
  Company Number: US-ELI_LILLY_AND_COMPANY-US200909004392

PATIENT
  Sex: Female

DRUGS (2)
  1. FORTEO [Suspect]
  2. HYDROCODONE [Concomitant]

REACTIONS (3)
  - ASTHENIA [None]
  - INTENTIONAL DRUG MISUSE [None]
  - INTESTINAL RESECTION [None]
